FAERS Safety Report 19455068 (Version 1)
Quarter: 2021Q2

REPORT INFORMATION
  Report Type: Report from Study
  Country: NL (occurrence: NL)
  Receive Date: 20210623
  Receipt Date: 20210623
  Transmission Date: 20210717
  Serious: Yes (Hospitalization)
  Sender: FDA-Public Use
  Company Number: NL-PFIZER INC-2021686965

PATIENT
  Age: 84 Year
  Sex: Female

DRUGS (15)
  1. PALBOCICLIB [Concomitant]
     Active Substance: PALBOCICLIB
  2. XGEVA [Suspect]
     Active Substance: DENOSUMAB
     Dosage: 1.7ML, CYCLIC Q4WK
     Route: 058
     Dates: start: 20210325
  3. DIGOXINE [Concomitant]
     Active Substance: DIGOXIN
  4. FUROSEMIDE. [Concomitant]
     Active Substance: FUROSEMIDE
  5. COLECALCIFEROL [Concomitant]
     Active Substance: CHOLECALCIFEROL
  6. METOPROLOL SUCCINATE. [Concomitant]
     Active Substance: METOPROLOL SUCCINATE
  7. PANTOPRAZOLE [Concomitant]
     Active Substance: PANTOPRAZOLE
  8. FULVESTRANT. [Concomitant]
     Active Substance: FULVESTRANT
  9. IBRANCE [Suspect]
     Active Substance: PALBOCICLIB
     Indication: METASTASES TO LUNG
  10. XGEVA [Suspect]
     Active Substance: DENOSUMAB
     Indication: PROPHYLAXIS
     Dosage: 1.7ML, CYCLIC Q4WK
     Route: 058
     Dates: start: 20191010
  11. MAGNESIUMHYDROXIDE [Concomitant]
  12. XGEVA [Suspect]
     Active Substance: DENOSUMAB
     Dosage: 1.7ML, CYCLIC Q4WK
     Route: 058
     Dates: start: 20210422
  13. ENALAPRIL [Concomitant]
     Active Substance: ENALAPRIL
  14. IBRANCE [Suspect]
     Active Substance: PALBOCICLIB
     Indication: METASTASES TO LIVER
     Dosage: UNK
  15. RIVAROXABAN [Concomitant]
     Active Substance: RIVAROXABAN

REACTIONS (2)
  - Neoplasm progression [Not Recovered/Not Resolved]
  - Dyspnoea [Recovered/Resolved]

NARRATIVE: CASE EVENT DATE: 20210419
